FAERS Safety Report 9114168 (Version 1)
Quarter: 2013Q1

REPORT INFORMATION
  Report Type: Spontaneous
  Country: US (occurrence: US)
  Receive Date: 20130208
  Receipt Date: 20130208
  Transmission Date: 20140127
  Serious: Yes (Other)
  Sender: FDA-Public Use
  Company Number: US-ASTRAZENECA-2013SE07342

PATIENT
  Age: 65 Year
  Sex: Female
  Weight: 54.4 kg

DRUGS (4)
  1. NEXIUM [Suspect]
     Indication: ABDOMINAL DISCOMFORT
     Route: 048
     Dates: end: 2011
  2. OMEPRAZOLE [Suspect]
     Route: 048
  3. PLAVIX [Concomitant]
     Dates: start: 2012
  4. PROTANOZOLE [Concomitant]

REACTIONS (7)
  - Thrombosis [Recovering/Resolving]
  - Aphagia [Not Recovered/Not Resolved]
  - Visual impairment [Not Recovered/Not Resolved]
  - Eye pain [Not Recovered/Not Resolved]
  - Nausea [Not Recovered/Not Resolved]
  - Off label use [Recovered/Resolved]
  - Drug ineffective [Unknown]
